FAERS Safety Report 25162830 (Version 2)
Quarter: 2025Q2

REPORT INFORMATION
  Report Type: Spontaneous
  Country: CH (occurrence: CH)
  Receive Date: 20250404
  Receipt Date: 20250415
  Transmission Date: 20250716
  Serious: Yes (Death, Other)
  Sender: BAYER
  Company Number: CH-BAYER-2025A045429

PATIENT
  Sex: Male

DRUGS (1)
  1. VITRAKVI [Suspect]
     Active Substance: LAROTRECTINIB
     Indication: Lung cancer metastatic
     Dosage: 100 MG, BID
     Dates: start: 202302

REACTIONS (2)
  - Lung cancer metastatic [Fatal]
  - General physical health deterioration [None]
